FAERS Safety Report 4504158-5 (Version None)
Quarter: 2004Q4

REPORT INFORMATION
  Report Type: 
  Country: None (occurrence: None)
  Receive Date: 20041118
  Receipt Date: 20041112
  Transmission Date: 20050328
  Serious: Yes (Hospitalization)
  Sender: FDA-Public Use
  Company Number: JP-BRISTOL-MYERS SQUIBB COMPANY-12763629

PATIENT
  Age: 76 Year
  Sex: Male

DRUGS (2)
  1. TAXOL [Suspect]
     Indication: LUNG NEOPLASM MALIGNANT
     Dosage: DAYS 2,8,15
     Route: 041
  2. PARAPLATIN [Suspect]
     Indication: LUNG NEOPLASM MALIGNANT
     Dosage: DAY 1
     Route: 041

REACTIONS (1)
  - MECHANICAL ILEUS [None]
